FAERS Safety Report 8462061-2 (Version None)
Quarter: 2012Q2

REPORT INFORMATION
  Report Type: 
  Country: None (occurrence: None)
  Receive Date: 20120625
  Receipt Date: 20120612
  Transmission Date: 20120825
  Serious: Yes (Death, Hospitalization)
  Sender: FDA-Public Use
  Company Number: US-SANOFI-AVENTIS-2012SA042580

PATIENT
  Age: 55 Year
  Sex: Male

DRUGS (1)
  1. ELOXATIN [Suspect]
     Indication: COLON CANCER
     Route: 065

REACTIONS (2)
  - DEATH [None]
  - PULMONARY FIBROSIS [None]
